FAERS Safety Report 23226171 (Version 4)
Quarter: 2024Q1

REPORT INFORMATION
  Report Type: Spontaneous
  Country: US (occurrence: US)
  Receive Date: 20231124
  Receipt Date: 20240315
  Transmission Date: 20240410
  Serious: Yes (Hospitalization, Other)
  Sender: FDA-Public Use
  Company Number: US-BEH-2023165660

PATIENT
  Age: 56 Year
  Sex: Female

DRUGS (64)
  1. HIZENTRA [Suspect]
     Active Substance: HUMAN IMMUNOGLOBULIN G
     Indication: Immunodeficiency
     Dosage: 12 GRAM, QW
     Route: 058
     Dates: start: 20220604
  2. HIZENTRA [Suspect]
     Active Substance: HUMAN IMMUNOGLOBULIN G
     Indication: Hypogammaglobulinaemia
     Dosage: 12 GRAM, QW
     Route: 058
     Dates: start: 20210831
  3. ACETAZOLAMIDE [Concomitant]
     Active Substance: ACETAZOLAMIDE
     Dosage: 125 MILLIGRAM
  4. ACETAZOLAMIDE [Concomitant]
     Active Substance: ACETAZOLAMIDE
     Dosage: 250 UNK
  5. ASPIRIN [Concomitant]
     Active Substance: ASPIRIN
     Dosage: 81 MILLIGRAM
  6. AZITHROMYCIN MONOHYDRATE [Concomitant]
     Active Substance: AZITHROMYCIN MONOHYDRATE
     Dosage: 500 MILLIGRAM
  7. BENZONATATE [Concomitant]
     Active Substance: BENZONATATE
     Dosage: 100 MILLIGRAM
  8. BETAMETASON [BETAMETHASONE SODIUM PHOSPHATE] [Concomitant]
  9. BETAMETHASONE DIPROPIONATE [Concomitant]
     Active Substance: BETAMETHASONE DIPROPIONATE
  10. BUDESONIDE [Concomitant]
     Active Substance: BUDESONIDE
     Dosage: 0.5 MILLIGRAM
  11. CLARITHROMYCIN [Concomitant]
     Active Substance: CLARITHROMYCIN
     Dosage: 500 MILLIGRAM
  12. CLOTRIMAZOLE [Concomitant]
     Active Substance: CLOTRIMAZOLE
     Dosage: 10 MILLIGRAM
  13. CODEINE [Concomitant]
     Active Substance: CODEINE
  14. CORLANOR [Concomitant]
     Active Substance: IVABRADINE HYDROCHLORIDE
     Dosage: 5 MILLIGRAM
  15. CORLANOR [Concomitant]
     Active Substance: IVABRADINE HYDROCHLORIDE
     Dosage: 7.5 UNK
  16. CRESTOR [Concomitant]
     Active Substance: ROSUVASTATIN CALCIUM
     Dosage: 20 MILLIGRAM
  17. DAPSONE [Concomitant]
     Active Substance: DAPSONE
     Dosage: 100 MILLIGRAM
  18. DEPO-MEDROL [Concomitant]
     Active Substance: METHYLPREDNISOLONE ACETATE
  19. DULERA [Concomitant]
     Active Substance: FORMOTEROL FUMARATE DIHYDRATE\MOMETASONE FUROATE
  20. EMGALITY [Concomitant]
     Active Substance: GALCANEZUMAB-GNLM
  21. EZETIMIBE [Concomitant]
     Active Substance: EZETIMIBE
  22. FASENRA [Concomitant]
     Active Substance: BENRALIZUMAB
  23. FOLIC ACID [Concomitant]
     Active Substance: FOLIC ACID
  24. FUROSEMIDE [Concomitant]
     Active Substance: FUROSEMIDE
     Dosage: 20 MILLIGRAM
  25. HISTEX DM [Concomitant]
     Active Substance: DEXTROMETHORPHAN HYDROBROMIDE\PHENYLEPHRINE HYDROCHLORIDE\TRIPROLIDINE HYDROCHLORIDE
  26. HUMIRA [Concomitant]
     Active Substance: ADALIMUMAB
     Dosage: 40 MILLIGRAM
  27. HYDROCODONE [Concomitant]
     Active Substance: HYDROCODONE
  28. HYDROCHLOROTHIAZIDE [Concomitant]
     Active Substance: HYDROCHLOROTHIAZIDE
     Dosage: 12.5 MILLIGRAM
  29. HYDROCODONE BITARTRATE AND ACETAMINOPHEN [Concomitant]
     Active Substance: ACETAMINOPHEN\HYDROCODONE BITARTRATE
  30. HYDROXYZINUM ZENTIVA [Concomitant]
     Dosage: 25 MILLIGRAM
  31. IPRATROPIUM [Concomitant]
     Active Substance: IPRATROPIUM
  32. ISOSORBIDE MONONITRATE [Concomitant]
     Active Substance: ISOSORBIDE MONONITRATE
  33. JANUVIA [Concomitant]
     Active Substance: SITAGLIPTIN PHOSPHATE
  34. KENALOG [Concomitant]
     Active Substance: TRIAMCINOLONE ACETONIDE
  35. CLARITHROMYCIN [Concomitant]
     Active Substance: CLARITHROMYCIN
  36. MESTINON [Concomitant]
     Active Substance: PYRIDOSTIGMINE BROMIDE
  37. METHOCARBAMOL [Concomitant]
     Active Substance: METHOCARBAMOL
  38. METHOTREXATE [Concomitant]
     Active Substance: METHOTREXATE
     Dosage: 2.5 MILLIGRAM
  39. MIRAPEX [Concomitant]
     Active Substance: PRAMIPEXOLE DIHYDROCHLORIDE
  40. MOTEGRITY [Concomitant]
     Active Substance: PRUCALOPRIDE SUCCINATE
  41. NITROGLYCERIN [Concomitant]
     Active Substance: NITROGLYCERIN
  42. NORTRIPTYLINE [Concomitant]
     Active Substance: NORTRIPTYLINE
  43. NYSTATIN [Concomitant]
     Active Substance: NYSTATIN
  44. POTASSIUM CHLORIDE [Concomitant]
     Active Substance: POTASSIUM CHLORIDE
     Dosage: 20 MILLIEQUIVALENT
  45. PRAMIPEXOLE [Concomitant]
     Active Substance: PRAMIPEXOLE\PRAMIPEXOLE DIHYDROCHLORIDE
  46. PREDNISONE [Concomitant]
     Active Substance: PREDNISONE
     Dosage: 10 MILLIGRAM
  47. PREDNISONE [Concomitant]
     Active Substance: PREDNISONE
     Dosage: 50 UNK
  48. OMEPRAZOLE [Concomitant]
     Active Substance: OMEPRAZOLE
  49. QVAR REDIHALER [Concomitant]
     Active Substance: BECLOMETHASONE DIPROPIONATE
  50. ROSUVASTATIN [Concomitant]
     Active Substance: ROSUVASTATIN
  51. SINGULAIR [Concomitant]
     Active Substance: MONTELUKAST SODIUM
  52. SPIRIVA [Concomitant]
     Active Substance: TIOTROPIUM BROMIDE MONOHYDRATE
  53. SPIRONOLACTONE [Concomitant]
     Active Substance: SPIRONOLACTONE
  54. TIZANIDINE [Concomitant]
     Active Substance: TIZANIDINE
  55. UBRELVY [Concomitant]
     Active Substance: UBROGEPANT
  56. VERAPAMIL [Concomitant]
     Active Substance: VERAPAMIL HYDROCHLORIDE
  57. VITAMIN D NOS [Concomitant]
     Active Substance: VITAMIN D NOS
  58. WARFARIN [Concomitant]
     Active Substance: WARFARIN
  59. XELJANZ XR [Concomitant]
     Active Substance: TOFACITINIB CITRATE
  60. XOPENEX [Concomitant]
     Active Substance: LEVALBUTEROL HYDROCHLORIDE
  61. ZETIA [Concomitant]
     Active Substance: EZETIMIBE
  62. ZOFRAN [Concomitant]
     Active Substance: ONDANSETRON HYDROCHLORIDE
  63. ZONEGRAN [Concomitant]
     Active Substance: ZONISAMIDE
  64. ZONISAMIDE [Concomitant]
     Active Substance: ZONISAMIDE

REACTIONS (18)
  - Drug ineffective [Not Recovered/Not Resolved]
  - Pain [Not Recovered/Not Resolved]
  - Fatigue [Not Recovered/Not Resolved]
  - Alopecia [Not Recovered/Not Resolved]
  - Infection [Unknown]
  - Pyrexia [Unknown]
  - Hyperhidrosis [Unknown]
  - Pain [Unknown]
  - Drug ineffective [Not Recovered/Not Resolved]
  - Loss of personal independence in daily activities [Not Recovered/Not Resolved]
  - Pain [Not Recovered/Not Resolved]
  - Infection [Not Recovered/Not Resolved]
  - Fatigue [Not Recovered/Not Resolved]
  - Alopecia [Not Recovered/Not Resolved]
  - Urinary tract infection [Unknown]
  - Infection [Unknown]
  - Pain [Unknown]
  - Ill-defined disorder [Unknown]

NARRATIVE: CASE EVENT DATE: 20231001
